FAERS Safety Report 7688697-4 (Version None)
Quarter: 2011Q3

REPORT INFORMATION
  Report Type: 
  Country: None (occurrence: None)
  Receive Date: 20110817
  Receipt Date: 20110808
  Transmission Date: 20111222
  Serious: Yes (Hospitalization, Other)
  Sender: FDA-Public Use
  Company Number: US-VIIV HEALTHCARE LIMITED-A0941144A

PATIENT
  Sex: Male
  Weight: 1.1 kg

DRUGS (6)
  1. MARIJUANA [Suspect]
     Route: 064
  2. COMBIVIR [Suspect]
     Indication: ANTIRETROVIRAL THERAPY
     Dosage: 2TAB PER DAY
     Route: 064
     Dates: start: 20110317
  3. KALETRA [Suspect]
     Indication: ANTIRETROVIRAL THERAPY
     Dosage: 4TAB PER DAY
     Route: 064
     Dates: start: 20110317
  4. TOBACCO [Concomitant]
  5. ALCOHOL [Concomitant]
  6. COCAINE [Suspect]
     Route: 064

REACTIONS (4)
  - GASTROSCHISIS [None]
  - PREMATURE BABY [None]
  - GASTROINTESTINAL NECROSIS [None]
  - MATERNAL EXPOSURE DURING PREGNANCY [None]
